FAERS Safety Report 7988168 (Version 2)
Quarter: 2013Q1

REPORT INFORMATION
  Report Type: Spontaneous
  Country: GB (occurrence: GB)
  Receive Date: 20110613
  Receipt Date: 20130228
  Transmission Date: 20140127
  Serious: Yes (Death)
  Sender: FDA-Public Use
  Company Number: PHFR2002GB02408

PATIENT
  Sex: Male

DRUGS (5)
  1. CLOZARIL [Suspect]
     Indication: SCHIZOPHRENIA
     Dosage: 37.5 MG, QD
     Route: 048
     Dates: start: 20020702
  2. CHLORPROMAZINE [Concomitant]
     Dosage: 50 MG, BID
     Route: 048
  3. PAROXETINE [Concomitant]
     Dosage: 20 MG
     Route: 048
  4. INDAPAMIDE [Concomitant]
     Dosage: 2.5 MG, MANE
     Route: 048
  5. BENZHEXOL [Concomitant]
     Dosage: 5 MG, BID
     Route: 048

REACTIONS (12)
  - Circulatory collapse [Fatal]
  - Chest pain [Fatal]
  - Hypotension [Fatal]
  - Tachycardia [Fatal]
  - Pallor [Fatal]
  - Blood urea increased [Fatal]
  - Blood thyroid stimulating hormone increased [Fatal]
  - Pneumonia [Fatal]
  - Dyspnoea [Fatal]
  - Crepitations [Fatal]
  - Infection [Unknown]
  - Body temperature increased [Unknown]
